FAERS Safety Report 6248084-2 (Version None)
Quarter: 2009Q2

REPORT INFORMATION
  Report Type: 
  Country: None (occurrence: None)
  Receive Date: 20090629
  Receipt Date: 20070501
  Transmission Date: 20091009
  Serious: Yes (Hospitalization, Other)
  Sender: FDA-Public Use
  Company Number: US-ASTRAZENECA-2006UW23904

PATIENT
  Age: 8014 Day
  Sex: Female
  Weight: 58.1 kg

DRUGS (12)
  1. SEROQUEL [Suspect]
     Route: 048
  2. SEROQUEL [Suspect]
     Dosage: 25 MG PM
     Route: 048
     Dates: start: 20030521
  3. ZYPREXA [Suspect]
     Dates: start: 20020917
  4. ZYPREXA [Suspect]
     Dates: start: 20040816
  5. ZYPREXA [Suspect]
     Dates: start: 20021015
  6. CLOZARIL [Concomitant]
  7. GEODON [Concomitant]
     Dates: start: 20030521
  8. RISPERDAL [Concomitant]
  9. DIAZEPAM [Concomitant]
     Dates: start: 20030213
  10. TRILEPTAL [Concomitant]
     Dates: start: 20030114
  11. TRAZODONE HCL [Concomitant]
     Dates: start: 20030114
  12. CLONAZEPAM [Concomitant]
     Dates: start: 20040816

REACTIONS (6)
  - DIABETES MELLITUS [None]
  - HYPERPROLACTINAEMIA [None]
  - NEPHROLITHIASIS [None]
  - PANCREATITIS [None]
  - PYELONEPHRITIS [None]
  - RENAL DISORDER [None]
